FAERS Safety Report 10228424 (Version 2)
Quarter: 2014Q2

REPORT INFORMATION
  Report Type: Report from Study
  Country: BR (occurrence: BR)
  Receive Date: 20140610
  Receipt Date: 20140613
  Transmission Date: 20141212
  Serious: Yes (Death, Hospitalization, Other)
  Sender: FDA-Public Use
  Company Number: BR-ACTELION-A-CH2014-100102

PATIENT
  Age: 62 Year
  Sex: Female

DRUGS (1)
  1. TRACLEER [Suspect]
     Indication: PULMONARY ARTERIAL HYPERTENSION
     Dosage: 125 MG, BID
     Route: 048
     Dates: start: 20120201

REACTIONS (5)
  - Scleroderma [Fatal]
  - Concomitant disease aggravated [Fatal]
  - Fatigue [Fatal]
  - Total lung capacity decreased [Fatal]
  - General physical health deterioration [Unknown]
